FAERS Safety Report 5432611-9 (Version None)
Quarter: 2007Q3

REPORT INFORMATION
  Report Type: 
  Country: None (occurrence: None)
  Receive Date: 20070831
  Receipt Date: 20070809
  Transmission Date: 20080115
  Serious: No
  Sender: FDA-Public Use
  Company Number: A0661525A

PATIENT
  Age: 15 Month
  Sex: Female

DRUGS (1)
  1. ALLI [Suspect]
     Dates: start: 20070609

REACTIONS (3)
  - ACCIDENTAL EXPOSURE [None]
  - NO ADVERSE REACTION [None]
  - PHARMACEUTICAL PRODUCT COMPLAINT [None]
